FAERS Safety Report 20951323 (Version 2)
Quarter: 2022Q2

REPORT INFORMATION
  Report Type: Report from Study
  Country: IT (occurrence: IT)
  Receive Date: 20220613
  Receipt Date: 20220621
  Transmission Date: 20220720
  Serious: Yes (Death, Hospitalization)
  Sender: FDA-Public Use
  Company Number: IT-OTSUKA-2022_031352

PATIENT
  Age: 56 Year
  Sex: Male

DRUGS (2)
  1. DECITABINE [Suspect]
     Active Substance: DECITABINE
     Indication: Acute myeloid leukaemia
     Dosage: 20 MG PER SQUARE METER OF BSA (ON DAYS 1 THROUGH 5) (20 MG/M2)
     Route: 042
  2. VENETOCLAX [Suspect]
     Active Substance: VENETOCLAX
     Indication: Acute myeloid leukaemia
     Dosage: 100 MG ON DAY 1, 200 MG ON DAY 2 AND FROM DAY 3 ON THE TARGET DOSE OF 400 MG(400 MG,1 IN 1 D)
     Route: 048

REACTIONS (4)
  - Groin abscess [Recovered/Resolved]
  - Febrile neutropenia [Fatal]
  - Sepsis [Fatal]
  - Neutropenia [Recovered/Resolved]
